FAERS Safety Report 9135699 (Version 1)
Quarter: 2013Q1

REPORT INFORMATION
  Report Type: Spontaneous
  Country: US (occurrence: US)
  Receive Date: 20130304
  Receipt Date: 20130304
  Transmission Date: 20140127
  Serious: No
  Sender: FDA-Public Use
  Company Number: US-009507513-1303USA000643

PATIENT
  Sex: Male

DRUGS (3)
  1. JANUVIA [Suspect]
     Dosage: UNK
  2. METFORMIN [Concomitant]
     Dosage: UNK
  3. GLYBURIDE [Concomitant]
     Dosage: UNK

REACTIONS (1)
  - Anaphylactic reaction [Recovering/Resolving]
